FAERS Safety Report 11232240 (Version 2)
Quarter: 2015Q4

REPORT INFORMATION
  Report Type: Report from Study
  Country: US (occurrence: US)
  Receive Date: 20150701
  Receipt Date: 20151009
  Transmission Date: 20160304
  Serious: Yes (Death, Other)
  Sender: FDA-Public Use
  Company Number: US-BAYER-2015-363571

PATIENT
  Age: 66 Year
  Sex: Male

DRUGS (1)
  1. XOFIGO [Suspect]
     Active Substance: RADIUM RA-223 DICHLORIDE
     Indication: PROSTATE CANCER
     Dosage: UNK
     Dates: start: 20150413, end: 20150413

REACTIONS (7)
  - Platelet count decreased [Not Recovered/Not Resolved]
  - Contusion [Recovering/Resolving]
  - Haemoglobin decreased [None]
  - Asthenia [None]
  - Fatigue [None]
  - Death [Fatal]
  - Haematocrit decreased [None]

NARRATIVE: CASE EVENT DATE: 20150920
